FAERS Safety Report 7006234-4 (Version None)
Quarter: 2010Q3

REPORT INFORMATION
  Report Type: 
  Country: None (occurrence: None)
  Receive Date: 20100921
  Receipt Date: 20100909
  Transmission Date: 20110219
  Serious: Yes (Other)
  Sender: FDA-Public Use
  Company Number: US-PFIZER INC-2010106262

PATIENT
  Sex: Male
  Weight: 111.11 kg

DRUGS (12)
  1. LYRICA [Suspect]
     Indication: BACK PAIN
     Dosage: 75 MG, 2X/DAY
     Route: 048
     Dates: start: 20100813, end: 20100824
  2. LYRICA [Suspect]
     Indication: NEUROPATHY PERIPHERAL
  3. ACETYLSALICYLIC ACID [Concomitant]
     Dosage: 81 MG, 1X/DAY
  4. BUMEX [Concomitant]
     Dosage: 2 MG, 1X/DAY
  5. OMEPRAZOLE [Concomitant]
     Dosage: 20 MG, 1X/DAY
  6. AMIODARONE [Concomitant]
     Dosage: 200 MG, 1X/DAY
  7. COREG [Concomitant]
     Dosage: 6.25 MG, 2X/DAY
  8. MAGNESIUM [Concomitant]
     Dosage: 64 MG, 2X/DAY
  9. LISINOPRIL [Concomitant]
     Dosage: 10 MG, 1X/DAY
  10. LIPITOR [Concomitant]
     Dosage: 40 MG, AT BEDTIME
  11. WARFARIN SODIUM [Concomitant]
     Dosage: UNK
  12. XALATAN [Concomitant]
     Dosage: UNK

REACTIONS (3)
  - FLUID RETENTION [None]
  - OEDEMA PERIPHERAL [None]
  - WEIGHT INCREASED [None]
